FAERS Safety Report 8960643 (Version 1)
Quarter: 2012Q4

REPORT INFORMATION
  Report Type: 
  Country: US (occurrence: US)
  Receive Date: 20121213
  Receipt Date: 20121213
  Transmission Date: 20130627
  Serious: No
  Sender: FDA-Public Use
  Company Number: US-009507513-1212USA003901

PATIENT
  Age: 75 Year
  Sex: Female

DRUGS (2)
  1. JANUVIA [Suspect]
     Indication: DIABETES MELLITUS
     Dosage: 1 DF, qd
     Route: 048
     Dates: start: 20121206
  2. METFORMIN [Concomitant]

REACTIONS (2)
  - Blood glucose increased [Recovering/Resolving]
  - Product quality issue [Unknown]
